FAERS Safety Report 18683440 (Version 1)
Quarter: 2020Q4

REPORT INFORMATION
  Report Type: Spontaneous
  Country: US (occurrence: US)
  Receive Date: 20201230
  Receipt Date: 20201230
  Transmission Date: 20210114
  Serious: No
  Sender: FDA-Public Use
  Company Number: None

PATIENT
  Age: 60 Year
  Sex: Female
  Weight: 49.5 kg

DRUGS (9)
  1. ELAVIL [Concomitant]
     Active Substance: AMITRIPTYLINE HYDROCHLORIDE
  2. NEOMYCIN + POLMYXIN B SULFATES + DEXAMETHASONE OPHTHALMIC OINTMENT [Concomitant]
  3. VITAMIN D [Concomitant]
     Active Substance: VITAMIN D NOS
  4. TOBRADEX [Concomitant]
     Active Substance: DEXAMETHASONE\TOBRAMYCIN
  5. VITAMINS C [Concomitant]
  6. XIIDRA [Suspect]
     Active Substance: LIFITEGRAST
     Indication: DRY EYE
  7. CALCIUM [Concomitant]
     Active Substance: CALCIUM
  8. MULTIPLE VITAMINS [Concomitant]
     Active Substance: VITAMINS
  9. VITAMIN E [Concomitant]
     Active Substance: .ALPHA.-TOCOPHEROL

REACTIONS (4)
  - Erythema [None]
  - Burning sensation [None]
  - Eye disorder [None]
  - Swelling of eyelid [None]
